FAERS Safety Report 7995693-6 (Version None)
Quarter: 2011Q4

REPORT INFORMATION
  Report Type: 
  Country: None (occurrence: None)
  Receive Date: 20111220
  Receipt Date: 20111214
  Transmission Date: 20120403
  Serious: Yes (Other)
  Sender: FDA-Public Use
  Company Number: US-ABBOTT-11P-163-0699519-00

PATIENT
  Sex: Female

DRUGS (12)
  1. FISH OIL [Concomitant]
     Indication: MEDICAL DIET
  2. NORVASC [Concomitant]
     Indication: HYPERTENSION
  3. SYNTHROID [Concomitant]
     Indication: HYPOTHYROIDISM
  4. LEFLUNOMIDE [Concomitant]
     Indication: ARTHRITIS
  5. HUMIRA [Suspect]
     Indication: RHEUMATOID ARTHRITIS
     Dates: start: 20080501
  6. CRESTOR [Concomitant]
     Indication: BLOOD CHOLESTEROL INCREASED
  7. TRIAZOLAM [Concomitant]
     Indication: INSOMNIA
  8. PERCOCET [Concomitant]
     Indication: PAIN
     Dosage: 5/325 AS NEEDED
  9. LISINOPRIL [Concomitant]
     Indication: BLOOD PRESSURE
  10. NEURONTIN [Concomitant]
     Indication: NEUROPATHY PERIPHERAL
  11. FEXOFENADINE HCL [Concomitant]
     Indication: SINUS CONGESTION
  12. VITAMIN D [Concomitant]
     Indication: VITAMIN SUPPLEMENTATION

REACTIONS (1)
  - INGROWING NAIL [None]
